FAERS Safety Report 25979792 (Version 1)
Quarter: 2025Q4

REPORT INFORMATION
  Report Type: Report from Study
  Country: US (occurrence: US)
  Receive Date: 20251030
  Receipt Date: 20251030
  Transmission Date: 20260117
  Serious: Yes (Hospitalization)
  Sender: OTSUKA
  Company Number: US-MMM-Otsuka-M50EF786

PATIENT
  Sex: Male

DRUGS (1)
  1. TOLVAPTAN [Suspect]
     Active Substance: TOLVAPTAN
     Indication: Inappropriate antidiuretic hormone secretion
     Dosage: 15 MG, QOD (15MG TABLET BY MOUTH EVERY OTHER DAY)
     Dates: end: 20251022

REACTIONS (2)
  - Blood sodium decreased [Unknown]
  - Inappropriate schedule of product administration [Unknown]
